FAERS Safety Report 5830556-3 (Version None)
Quarter: 2008Q3

REPORT INFORMATION
  Report Type: 
  Country: None (occurrence: None)
  Receive Date: 20080801
  Receipt Date: 20070716
  Transmission Date: 20090109
  Serious: No
  Sender: FDA-Public Use
  Company Number: US-BRISTOL-MYERS SQUIBB COMPANY-13847496

PATIENT
  Sex: Male
  Weight: 80 kg

DRUGS (8)
  1. COUMADIN [Suspect]
     Indication: ATRIAL FIBRILLATION
     Route: 048
  2. HYDROCHLOROTHIAZIDE [Concomitant]
  3. TOPROL-XL [Concomitant]
  4. ZOCOR [Concomitant]
  5. CENTRUM [Concomitant]
  6. ASPIRIN [Concomitant]
  7. ZOLADEX [Concomitant]
  8. LOSARTAN POTASSIUM [Concomitant]

REACTIONS (1)
  - SKIN DISCOLOURATION [None]
